FAERS Safety Report 4310338-4 (Version None)
Quarter: 2004Q1

REPORT INFORMATION
  Report Type: 
  Country: None (occurrence: None)
  Receive Date: 20040303
  Receipt Date: 20011002
  Transmission Date: 20041129
  Serious: Yes (Life-Threatening, Other)
  Sender: FDA-Public Use
  Company Number: 11013885

PATIENT
  Sex: Female

DRUGS (58)
  1. STADOL [Suspect]
     Route: 045
  2. CEPHALEXIN [Concomitant]
  3. IBUPROFEN [Concomitant]
  4. HYDROCORTISONE CREAM [Concomitant]
     Dosage: 2.5% CREAM
  5. SERZONE [Concomitant]
  6. LORCET-HD [Concomitant]
  7. PROMETHAZINE [Concomitant]
  8. LORABID [Concomitant]
  9. BRONTEX [Concomitant]
  10. ROWASA [Concomitant]
     Dosage: SUPPOSITORY
     Route: 054
  11. METRONIDAZOLE [Concomitant]
  12. ANUSOL HC [Concomitant]
     Dosage: 2.5% CREAM
  13. PROPACET 100 [Concomitant]
     Dosage: 100MG/650MG
  14. ZOLOFT [Concomitant]
  15. PRILOSEC [Concomitant]
  16. AUGMENTIN '500' [Concomitant]
  17. DEXAMETHASONE [Concomitant]
  18. ESGIC-PLUS [Concomitant]
  19. ACETAMINOPHEN W/ PROPOXYPHENE HCL [Concomitant]
     Dosage: 650/100MG
  20. DIPHENOXYLATE HCL + ATROPINE SULFATE [Concomitant]
  21. ERYTHROMYCIN [Concomitant]
  22. PREMARIN [Concomitant]
  23. NORCO [Concomitant]
     Dosage: 10MG/325MG
  24. DYNABAC [Concomitant]
  25. VICOPROFEN [Concomitant]
  26. CIPRO [Concomitant]
  27. AMBIEN [Concomitant]
  28. TERAZOL 3 [Concomitant]
     Dosage: CREAM
  29. ESTRATEST [Concomitant]
  30. LEVALLORPHAN [Concomitant]
     Dosage: LIQUID
  31. NASONEX [Concomitant]
     Route: 045
  32. SULFAMETTHOXAZOLE AND TRIMETHOPRIM [Concomitant]
  33. AMANTADINE HCL [Concomitant]
     Dosage: 50MG/5ML SYRUP
  34. METOCLOPRAMIDE [Concomitant]
  35. BUTALBITAL+APAP+CAFFEINE [Concomitant]
  36. FLOXIN [Concomitant]
  37. AMITRIPTYLINE HCL [Concomitant]
  38. DICYCLOMINE [Concomitant]
  39. ISOMETHEPTENE+DICHLORALPHENZON [Concomitant]
  40. NAPROXEN SODIUM [Concomitant]
  41. CLONAZEPAM [Concomitant]
  42. RANITIDINE [Concomitant]
  43. PAREGORIC [Concomitant]
     Dosage: LIQUID
  44. MEPROZINE [Concomitant]
     Dosage: 50MG/25MG
  45. PREDNISONE [Concomitant]
  46. TUSSIONEX [Concomitant]
     Dosage: SYRUP
  47. AVELOX [Concomitant]
  48. PROCHLORPERAZINE [Concomitant]
  49. CYTUSS HC [Concomitant]
  50. DURATUSS HD [Concomitant]
  51. CEPHADYN [Concomitant]
  52. TUSSADUR-HD [Concomitant]
  53. HISTEX [Concomitant]
  54. PROMINOL [Concomitant]
  55. XYLOCAINE [Concomitant]
     Dosage: VISCOUS 2%
  56. GUAIFENESIN [Concomitant]
  57. HYDROCODONE + ACETAMINOPHEN [Concomitant]
     Dosage: 7.5MG/650MG
  58. PHENYLPROPANOLAMINE + GUAIFENESIN [Concomitant]
     Dosage: HYDROCODONE 7.5MG/APAP 650MG

REACTIONS (2)
  - DEPENDENCE [None]
  - SUICIDE ATTEMPT [None]
